FAERS Safety Report 20189768 (Version 21)
Quarter: 2022Q2

REPORT INFORMATION
  Report Type: Spontaneous
  Country: PL (occurrence: PL)
  Receive Date: 20211215
  Receipt Date: 20220402
  Transmission Date: 20220721
  Serious: Yes (Hospitalization, Disabling, Other)
  Sender: FDA-Public Use
  Company Number: PL-NOVARTISPH-NVSC2021PL276127

PATIENT
  Age: 83 Year
  Sex: Female
  Weight: 91 kg

DRUGS (54)
  1. ALBUTEROL SULFATE [Interacting]
     Active Substance: ALBUTEROL SULFATE
     Indication: Product used for unknown indication
     Dosage: 100 UG/AD HOC (100 MICOGRAM, AS NEEDED, INTERMITTENTLY)
     Route: 065
  2. ALBUTEROL SULFATE [Interacting]
     Active Substance: ALBUTEROL SULFATE
     Dosage: 20 MG, BID
     Route: 065
  3. CITALOPRAM [Interacting]
     Active Substance: CITALOPRAM HYDROBROMIDE
     Indication: Depression
     Dosage: 40 MG, QD (0-0-1), AT ADMISSION
     Route: 048
  4. RAMIPRIL [Interacting]
     Active Substance: RAMIPRIL
     Indication: Cardiac failure
     Dosage: 5 MG, QD (1-0-0, AT LEAST FOR 2 YEARS, STOPPED)
     Route: 048
  5. RAMIPRIL [Interacting]
     Active Substance: RAMIPRIL
     Dosage: 100 MG, QD (50 MG Q12H)
     Route: 065
  6. METOPROLOL [Interacting]
     Active Substance: METOPROLOL
     Indication: Hypertension
     Dosage: 50 MG, BID (1-0-1/2, 100 MG QD)
     Route: 048
  7. ALLOPURINOL [Interacting]
     Active Substance: ALLOPURINOL
     Indication: Product used for unknown indication
     Dosage: 100 MG, QD (1-0-0), IN EVENING
     Route: 048
  8. GLICLAZIDE [Interacting]
     Active Substance: GLICLAZIDE
     Indication: Type 2 diabetes mellitus
     Dosage: 60 MG, TID (1-1-1, EXCESSIVE DOSES)
     Route: 065
  9. METFORMIN [Interacting]
     Active Substance: METFORMIN HYDROCHLORIDE
     Indication: Type 2 diabetes mellitus
     Dosage: UNK UNK, UNKNOWN
     Route: 065
  10. TORSEMIDE [Suspect]
     Active Substance: TORSEMIDE
     Indication: Product used for unknown indication
     Dosage: 5 MG, QD
     Route: 065
  11. ATORVASTATIN [Interacting]
     Active Substance: ATORVASTATIN
     Indication: Product used for unknown indication
     Dosage: 20 MG, QD (0-0-1)
     Route: 048
  12. ZOLPIDEM [Interacting]
     Active Substance: ZOLPIDEM TARTRATE
     Indication: Depression
     Dosage: 100 MG, QD (0-0-1, 1 DF)
     Route: 065
  13. ZOLPIDEM [Interacting]
     Active Substance: ZOLPIDEM TARTRATE
     Dosage: 10 MG, QD/ 0-0-1
     Route: 065
  14. ALPRAZOLAM [Interacting]
     Active Substance: ALPRAZOLAM
     Indication: Depression
     Dosage: 2 DF, QD/0.5 MG, 12 HRS (AS NECESSARY)
     Route: 065
  15. HYDROXYZINE HYDROCHLORIDE [Interacting]
     Active Substance: HYDROXYZINE HYDROCHLORIDE
     Indication: Product used for unknown indication
     Dosage: 25 MG, QD (AVG 2X2 QD)
     Route: 065
  16. HYDROXYZINE HYDROCHLORIDE [Interacting]
     Active Substance: HYDROXYZINE HYDROCHLORIDE
     Dosage: 40 MG, QD (1-0-0)
     Route: 065
  17. HYDROXYZINE HYDROCHLORIDE [Interacting]
     Active Substance: HYDROXYZINE HYDROCHLORIDE
     Dosage: 50 MG, QD (25 MG, AS NEEDED, AV. TWICE DAILY
     Route: 065
  18. HYDROXYZINE HYDROCHLORIDE [Interacting]
     Active Substance: HYDROXYZINE HYDROCHLORIDE
     Dosage: DOSAGE SCHEDULE: INTERMITTENTLY, ON AVERAGE 2 TIMES/24H (25 MG)
     Route: 065
  19. ISOSORBIDE MONONITRATE [Interacting]
     Active Substance: ISOSORBIDE MONONITRATE
     Indication: Product used for unknown indication
     Dosage: 50 MG, QD (AD HOC, ON AVG 1-2/ 1-2 X / 24 H)
     Route: 048
  20. ISOSORBIDE MONONITRATE [Interacting]
     Active Substance: ISOSORBIDE MONONITRATE
     Dosage: 100 MG, QD (50 MG BID AS NEED, INTERMITTENTLY, ON AVERAGE 1-2 TIMES/24H)
     Route: 048
  21. FUROSEMIDE [Interacting]
     Active Substance: FUROSEMIDE
     Indication: Product used for unknown indication
     Dosage: 120 MG, QD (40 MG, TID, 3 DF EVERY 2ND DAY)
     Route: 065
  22. SPIRONOLACTONE [Interacting]
     Active Substance: SPIRONOLACTONE
     Indication: Product used for unknown indication
     Dosage: 100 MG, QD (0-1-0, AT LEAST FOR 2 YEARS)
     Route: 065
  23. HYDROCHLOROTHIAZIDE [Interacting]
     Active Substance: HYDROCHLOROTHIAZIDE
     Indication: Product used for unknown indication
     Dosage: 25 MG, QD (1-0-0), IN MORNING
     Route: 065
  24. DABIGATRAN ETEXILATE [Interacting]
     Active Substance: DABIGATRAN ETEXILATE
     Indication: Product used for unknown indication
     Dosage: 220 MG, QD, 110 MG, BID (1-0-1, AT LEAST FOR 2 YEARS STOPPED)
     Route: 065
  25. DABIGATRAN ETEXILATE [Interacting]
     Active Substance: DABIGATRAN ETEXILATE
     Dosage: 20 MG, Q12H
     Route: 065
  26. BETAHISTINE HYDROCHLORIDE [Interacting]
     Active Substance: BETAHISTINE HYDROCHLORIDE
     Indication: Product used for unknown indication
     Dosage: 24 MG, QD (0-1-0)
     Route: 065
  27. BETAHISTINE HYDROCHLORIDE [Interacting]
     Active Substance: BETAHISTINE HYDROCHLORIDE
     Dosage: 20 MG, Q12H, 40 MG QD
     Route: 065
  28. BETAHISTINE HYDROCHLORIDE [Interacting]
     Active Substance: BETAHISTINE HYDROCHLORIDE
     Dosage: 1024 MG, Q24H
     Route: 065
  29. POTASSIUM CHLORIDE [Interacting]
     Active Substance: POTASSIUM CHLORIDE
     Indication: Product used for unknown indication
     Dosage: 391 MG (1 TABLET EVERY OTHER DAYS/ 1 DF EVERY 2 DAYS/391 MG K PLUS)
     Route: 065
  30. POTASSIUM CHLORIDE [Interacting]
     Active Substance: POTASSIUM CHLORIDE
     Dosage: 20 MG, Q12H (40 MG, QD)
     Route: 065
  31. POTASSIUM CHLORIDE [Interacting]
     Active Substance: POTASSIUM CHLORIDE
     Dosage: 782 MG, QD (391 MG, BID)
     Route: 065
  32. TRAMADOL HYDROCHLORIDE [Interacting]
     Active Substance: TRAMADOL HYDROCHLORIDE
     Indication: Pain
     Dosage: 2 TABLET (100 MG, AS NEEDED 2 TABLETS, 200 MG INTERMITTENTLY)
     Route: 048
  33. TRAMADOL HYDROCHLORIDE [Interacting]
     Active Substance: TRAMADOL HYDROCHLORIDE
     Dosage: 50 MG, IN CASE OF PAIN
     Route: 048
  34. TRAMADOL HYDROCHLORIDE [Interacting]
     Active Substance: TRAMADOL HYDROCHLORIDE
     Dosage: 20 MG, Q12H
     Route: 048
  35. ACETAMINOPHEN [Interacting]
     Active Substance: ACETAMINOPHEN
     Indication: Product used for unknown indication
     Dosage: 1000 MG, QD (500 MG, BID/1-0-1)
     Route: 065
  36. ACETAMINOPHEN [Interacting]
     Active Substance: ACETAMINOPHEN
     Dosage: 500 MG, QD (0-0-1), IN THE EVENING
     Route: 065
  37. ACETAMINOPHEN [Interacting]
     Active Substance: ACETAMINOPHEN
     Dosage: 20 MG, Q12H
     Route: 065
  38. OMEPRAZOLE [Interacting]
     Active Substance: OMEPRAZOLE
     Indication: Product used for unknown indication
     Dosage: 20 MG, BID (1-1-0)
     Route: 048
  39. OMEPRAZOLE [Interacting]
     Active Substance: OMEPRAZOLE
     Dosage: 100 MG, BID 1-1-0
     Route: 065
  40. LEVOTHYROXINE SODIUM [Interacting]
     Active Substance: LEVOTHYROXINE SODIUM
     Indication: Product used for unknown indication
     Dosage: 100 UG, QD (1-0-0) AT LEAST FOR 2 YRS
     Route: 065
  41. LEVOTHYROXINE SODIUM [Interacting]
     Active Substance: LEVOTHYROXINE SODIUM
     Dosage: 20 MG, Q12H
     Route: 065
  42. LEVOTHYROXINE SODIUM [Interacting]
     Active Substance: LEVOTHYROXINE SODIUM
     Dosage: 25 MG, Q24H
     Route: 065
  43. METOCLOPRAMIDE HYDROCHLORIDE [Interacting]
     Active Substance: METOCLOPRAMIDE HYDROCHLORIDE
     Indication: Constipation
     Dosage: 10 MG (AS NECESSARY 2 TABLETS, 2 DF)
     Route: 065
  44. METOCLOPRAMIDE HYDROCHLORIDE [Interacting]
     Active Substance: METOCLOPRAMIDE HYDROCHLORIDE
     Dosage: 20 MG (AS NECESSARY 2 TABLETS IN CASE OF CONSTIPATION FOR MANY MONTHS)
     Route: 065
  45. NIKETHAMIDE [Interacting]
     Active Substance: NIKETHAMIDE
     Indication: Product used for unknown indication
     Dosage: 125MG(INTERMITTENTLY)(1.5 PLUS125 MG) AS NEEDED
     Route: 065
  46. NIKETHAMIDE [Interacting]
     Active Substance: NIKETHAMIDE
     Dosage: 20 MG, Q12H
     Route: 065
  47. DEXTROSE [Interacting]
     Active Substance: DEXTROSE
     Indication: Product used for unknown indication
     Dosage: 1.5 MG INTERMITTENTLY (1.5 PLUS 125 MG) AS NEEDED
     Route: 065
  48. DEXTROSE [Interacting]
     Active Substance: DEXTROSE
     Dosage: 20 MG, Q12H (40 MG DAILY)
     Route: 065
  49. VITAMIN D3 [Suspect]
     Active Substance: CHOLECALCIFEROL
     Indication: Product used for unknown indication
     Dosage: UNK UNK, UNKNOWN
     Route: 065
  50. DENOSUMAB [Suspect]
     Active Substance: DENOSUMAB
     Indication: Product used for unknown indication
     Dosage: 60 MG, UNKNOWN
     Route: 065
  51. BENSERAZIDE\LEVODOPA [Suspect]
     Active Substance: BENSERAZIDE\LEVODOPA
     Indication: Product used for unknown indication
     Dosage: 187.5 MG, QD (62.5 MG, TID)
     Route: 065
  52. DONEPEZIL [Suspect]
     Active Substance: DONEPEZIL
     Indication: Product used for unknown indication
     Dosage: 5 MG, UNKNOWN
     Route: 065
  53. VORTIOXETINE [Concomitant]
     Active Substance: VORTIOXETINE
     Indication: Product used for unknown indication
     Dosage: 10 MG, QD/0-0-1
     Route: 065
  54. QUETIAPINE [Concomitant]
     Active Substance: QUETIAPINE
     Indication: Product used for unknown indication
     Dosage: 25 MG, QD/ 0-0-1
     Route: 065

REACTIONS (45)
  - Fall [Recovering/Resolving]
  - Cognitive disorder [Unknown]
  - Osteoporosis [Unknown]
  - Parkinsonism [Unknown]
  - Dementia [Unknown]
  - Drug dependence [Unknown]
  - Hypoglycaemia [Recovered/Resolved]
  - Drug interaction [Unknown]
  - Melaena [Unknown]
  - Arthralgia [Unknown]
  - Nausea [Unknown]
  - Abdominal pain upper [Unknown]
  - Pruritus [Unknown]
  - Urinary retention [Recovered/Resolved]
  - Muscle rigidity [Recovering/Resolving]
  - Syncope [Recovering/Resolving]
  - Insomnia [Unknown]
  - Diabetes mellitus inadequate control [Unknown]
  - Constipation [Unknown]
  - Mobility decreased [Recovering/Resolving]
  - Bradykinesia [Unknown]
  - Dizziness [Recovering/Resolving]
  - Hyponatraemia [Unknown]
  - Depression [Unknown]
  - Hypotension [Recovering/Resolving]
  - Off label use [Unknown]
  - Dysuria [Unknown]
  - Atrioventricular block first degree [Unknown]
  - Gastric polyps [Unknown]
  - Hyperkalaemia [Unknown]
  - Hiatus hernia [Unknown]
  - Drug ineffective [Unknown]
  - Blood creatine increased [Unknown]
  - Product administration error [Unknown]
  - Blood cholesterol decreased [Unknown]
  - Blood potassium increased [Unknown]
  - Blood urea increased [Unknown]
  - Initial insomnia [Unknown]
  - Sedation [Recovering/Resolving]
  - Motor dysfunction [Recovering/Resolving]
  - Peripheral circulatory failure [Unknown]
  - Orthostatic hypotension [Unknown]
  - Medication error [Unknown]
  - Hyperglycaemia [Unknown]
  - Product use issue [Unknown]

NARRATIVE: CASE EVENT DATE: 20010101
